FAERS Safety Report 8895841 (Version 3)
Quarter: 2012Q4

REPORT INFORMATION
  Report Type: 
  Country: JP (occurrence: JP)
  Receive Date: 20121108
  Receipt Date: 20121214
  Transmission Date: 20130627
  Serious: Yes (Other)
  Sender: FDA-Public Use
  Company Number: JP-ELI_LILLY_AND_COMPANY-JP201206000056

PATIENT
  Age: 71 Year
  Sex: Female
  Weight: 47 kg

DRUGS (4)
  1. FORTEO [Suspect]
     Indication: OSTEOPOROSIS
     Dosage: UNK UNK, qd
     Route: 058
     Dates: start: 20120426, end: 20121013
  2. CELECOX [Concomitant]
     Dosage: UNK
     Dates: start: 20120618
  3. OPALMON [Concomitant]
     Dosage: UNK
  4. TRAMACET [Concomitant]
     Dosage: UNK
     Dates: start: 20120414

REACTIONS (8)
  - Bladder cancer [Recovered/Resolved]
  - Haematuria [Unknown]
  - Eczema [Unknown]
  - Initial insomnia [Unknown]
  - Malaise [Not Recovered/Not Resolved]
  - Decreased appetite [Unknown]
  - Malaise [Unknown]
  - Dizziness [Unknown]
